FAERS Safety Report 9259364 (Version 2)
Quarter: 2013Q2

REPORT INFORMATION
  Report Type: Spontaneous
  Country: US (occurrence: US)
  Receive Date: 20130427
  Receipt Date: 20130510
  Transmission Date: 20140414
  Serious: No
  Sender: FDA-Public Use
  Company Number: US-009507513-1304USA015592

PATIENT
  Age: 58 Year
  Sex: Female
  Weight: 73.47 kg

DRUGS (2)
  1. JANUMET [Suspect]
     Indication: TYPE 2 DIABETES MELLITUS
     Dosage: 5/500
     Route: 048
     Dates: start: 20130405, end: 20130422
  2. METFORMIN [Concomitant]

REACTIONS (1)
  - Rash generalised [Recovered/Resolved]
